FAERS Safety Report 12902202 (Version 2)
Quarter: 2018Q4

REPORT INFORMATION
  Report Type: Spontaneous
  Country: US (occurrence: US)
  Receive Date: 20161102
  Receipt Date: 20181106
  Transmission Date: 20190204
  Serious: No
  Sender: FDA-Public Use
  Company Number: US-PFIZER INC-2016409861

PATIENT
  Age: 58 Year
  Sex: Female

DRUGS (1)
  1. XELJANZ [Suspect]
     Active Substance: TOFACITINIB CITRATE
     Indication: RHEUMATOID ARTHRITIS
     Dosage: 5 MG, UNK (X60)

REACTIONS (5)
  - Product dose omission [Unknown]
  - Arthralgia [Unknown]
  - Headache [Unknown]
  - Hypersensitivity [Unknown]
  - Condition aggravated [Unknown]

NARRATIVE: CASE EVENT DATE: 20161028
